FAERS Safety Report 7284762-4 (Version None)
Quarter: 2011Q1

REPORT INFORMATION
  Report Type: 
  Country: None (occurrence: None)
  Receive Date: 20110210
  Receipt Date: 20110202
  Transmission Date: 20110831
  Serious: Yes (Other)
  Sender: FDA-Public Use
  Company Number: US-US-EMD SERONO, INC.-238409K09USA

PATIENT
  Sex: Female

DRUGS (3)
  1. ADVAIR [Concomitant]
     Indication: BRONCHITIS
  2. REBIF [Suspect]
     Indication: MULTIPLE SCLEROSIS
     Route: 058
     Dates: start: 20080721
  3. STEROID PILLS [Concomitant]
     Indication: BRONCHITIS

REACTIONS (2)
  - CEREBROVASCULAR ACCIDENT [None]
  - VARICOSE VEIN [None]
